FAERS Safety Report 6077803-3 (Version None)
Quarter: 2009Q1

REPORT INFORMATION
  Report Type: 
  Country: None (occurrence: None)
  Receive Date: 20090213
  Receipt Date: 20090213
  Transmission Date: 20090719
  Serious: Yes (Other)
  Sender: FDA-Public Use
  Company Number: US-PFIZER INC-2009158478

PATIENT
  Sex: Female
  Weight: 47.173 kg

DRUGS (11)
  1. XALATAN [Suspect]
     Indication: GLAUCOMA
     Dosage: 2 DROPS EVERY DAY
  2. XALATAN [Suspect]
     Indication: CATARACT
  3. XALATAN [Suspect]
     Indication: MACULAR DEGENERATION
  4. AZOPT [Suspect]
     Dosage: UNK
  5. TOPROL-XL [Concomitant]
     Dosage: UNK
  6. ZOCOR [Concomitant]
     Dosage: UNK
  7. DIGOXIN [Concomitant]
     Dosage: UNK
  8. COUMADIN [Concomitant]
     Dosage: UNK
  9. ASCORBIC A/CA/CU/RETINOL/SELEN/TOCOPH/ZINC [Concomitant]
     Dosage: UNK
  10. LUTEIN [Concomitant]
     Dosage: UNK
  11. VITAMINS [Concomitant]
     Dosage: UNK

REACTIONS (6)
  - CARDIAC FAILURE [None]
  - EYE DISORDER [None]
  - INTRAOCULAR PRESSURE INCREASED [None]
  - LUNG NEOPLASM MALIGNANT [None]
  - VISION BLURRED [None]
  - WHITE BLOOD CELL COUNT DECREASED [None]
